FAERS Safety Report 15075437 (Version 1)
Quarter: 2018Q2

REPORT INFORMATION
  Report Type: Report from Study
  Country: US (occurrence: US)
  Receive Date: 20180627
  Receipt Date: 20180627
  Transmission Date: 20180711
  Serious: Yes (Other)
  Sender: FDA-Public Use
  Company Number: US-SAOL THERAPEUTICS-0700378085

PATIENT
  Age: 57 Year
  Sex: Male

DRUGS (7)
  1. CLONIDINE. [Suspect]
     Active Substance: CLONIDINE
     Dosage: 335.85 ?G, \DAY
     Route: 037
     Dates: start: 20180423
  2. CLONIDINE. [Suspect]
     Active Substance: CLONIDINE
     Dosage: 279.99 ?G, \DAY
     Route: 037
     Dates: start: 20180422, end: 20180423
  3. SUFENTANIL [Suspect]
     Active Substance: SUFENTANIL
     Dosage: 59.97 ?G, \DAY
     Route: 037
     Dates: start: 20130423
  4. SUFENTANIL [Suspect]
     Active Substance: SUFENTANIL
     Dosage: 50 ?G, \DAY
     Route: 037
     Dates: start: 20130422, end: 20180423
  5. LIORESAL [Suspect]
     Active Substance: BACLOFEN
     Indication: PAIN
     Dosage: 116 ?G, \DAY
     Route: 037
     Dates: start: 20180422, end: 20180423
  6. LIORESAL [Suspect]
     Active Substance: BACLOFEN
     Dosage: 139.14 ?G, \DAY
     Route: 037
     Dates: start: 20130423
  7. SUFENTANIL [Suspect]
     Active Substance: SUFENTANIL
     Dosage: 40  ?G, \DAY
     Route: 037
     Dates: start: 20130423

REACTIONS (4)
  - Off label use [Unknown]
  - Back pain [Recovered/Resolved]
  - Complication associated with device [Recovered/Resolved]
  - Device battery issue [Unknown]

NARRATIVE: CASE EVENT DATE: 20130423
